FAERS Safety Report 4598528-7 (Version None)
Quarter: 2005Q1

REPORT INFORMATION
  Report Type: 
  Country: None (occurrence: None)
  Receive Date: 20050304
  Receipt Date: 20050218
  Transmission Date: 20050727
  Serious: Yes (Death, Hospitalization)
  Sender: FDA-Public Use
  Company Number: SE-MERCK-0502SWE00031

PATIENT
  Age: 80 Year
  Sex: Female

DRUGS (1)
  1. ZOCOR [Suspect]
     Indication: MYOCARDIAL INFARCTION
     Route: 048

REACTIONS (2)
  - MULTI-ORGAN FAILURE [None]
  - RHABDOMYOLYSIS [None]
